FAERS Safety Report 5508116-3 (Version None)
Quarter: 2007Q4

REPORT INFORMATION
  Report Type: 
  Country: None (occurrence: None)
  Receive Date: 20071106
  Receipt Date: 20071025
  Transmission Date: 20080405
  Serious: Yes (Other)
  Sender: FDA-Public Use
  Company Number: US-PFIZER INC-2007081666

PATIENT
  Sex: Female
  Weight: 105 kg

DRUGS (3)
  1. CELEBREX [Suspect]
     Indication: ARTHRITIS
  2. COREG [Concomitant]
  3. HYZAAR [Concomitant]

REACTIONS (3)
  - BLADDER OPERATION [None]
  - CHOLECYSTITIS ACUTE [None]
  - DYSPEPSIA [None]
